FAERS Safety Report 16056208 (Version 1)
Quarter: 2019Q1

REPORT INFORMATION
  Report Type: Spontaneous
  Country: US (occurrence: US)
  Receive Date: 20190311
  Receipt Date: 20190311
  Transmission Date: 20190418
  Serious: No
  Sender: FDA-Public Use
  Company Number: US-BAYER-2019-049135

PATIENT
  Age: 56 Year
  Sex: Male

DRUGS (2)
  1. BETASERON [Suspect]
     Active Substance: INTERFERON BETA-1B
     Dosage: UNK UNK, BIW
     Dates: start: 20190308, end: 20190308
  2. BETASERON [Suspect]
     Active Substance: INTERFERON BETA-1B
     Dosage: UNK

REACTIONS (1)
  - Intentional product use issue [None]

NARRATIVE: CASE EVENT DATE: 20190308
